FAERS Safety Report 9407777 (Version 1)
Quarter: 2013Q1

REPORT INFORMATION
  Report Type: Spontaneous
  Country: US (occurrence: None)
  Receive Date: 20130318
  Receipt Date: 20130318
  Transmission Date: 20140127
  Serious: Yes (Other)
  Sender: FDA-Public Use
  Company Number: CLCY20120120

PATIENT
  Age: 47 Year
  Sex: Male

DRUGS (1)
  1. COLCRYS [Suspect]
     Indication: GOUT

REACTIONS (3)
  - Judgement impaired [None]
  - Road traffic accident [None]
  - Drug dose omission [None]
